FAERS Safety Report 22998910 (Version 2)
Quarter: 2024Q2

REPORT INFORMATION
  Report Type: Spontaneous
  Country: CA (occurrence: None)
  Receive Date: 20230928
  Receipt Date: 20240425
  Transmission Date: 20240716
  Serious: Yes (Other)
  Sender: FDA-Public Use
  Company Number: CA-ROCHE-3428837

PATIENT
  Sex: Female

DRUGS (11)
  1. RITUXIMAB [Suspect]
     Active Substance: RITUXIMAB
     Indication: Rheumatoid arthritis
     Route: 065
  2. RITUXIMAB [Suspect]
     Active Substance: RITUXIMAB
     Indication: Rheumatoid arthritis
     Route: 041
  3. ALENDRONATE SODIUM [Concomitant]
     Active Substance: ALENDRONATE SODIUM
  4. GABAPENTIN [Concomitant]
     Active Substance: GABAPENTIN
  5. HYDROXYCHLOROQUINE [Concomitant]
     Active Substance: HYDROXYCHLOROQUINE
  6. HYDROXYCHLOROQUINE SULFATE [Concomitant]
     Active Substance: HYDROXYCHLOROQUINE SULFATE
  7. RABEPRAZOLE [Concomitant]
     Active Substance: RABEPRAZOLE
  8. SULFASALAZINE [Concomitant]
     Active Substance: SULFASALAZINE
  9. SYNTHROID [Concomitant]
     Active Substance: LEVOTHYROXINE SODIUM
  10. MYCOPHENOLATE SODIUM [Concomitant]
     Active Substance: MYCOPHENOLATE SODIUM
  11. TENOFOVIR [Concomitant]
     Active Substance: TENOFOVIR

REACTIONS (4)
  - Hepatitis B [Unknown]
  - Mixed connective tissue disease [Unknown]
  - Serology positive [Unknown]
  - Systemic scleroderma [Unknown]
